FAERS Safety Report 7804832-9 (Version None)
Quarter: 2011Q4

REPORT INFORMATION
  Report Type: 
  Country: None (occurrence: None)
  Receive Date: 20111010
  Receipt Date: 20110929
  Transmission Date: 20120403
  Serious: Yes (Hospitalization, Other)
  Sender: FDA-Public Use
  Company Number: US-BAYER-201026398NA

PATIENT
  Age: 17 Year
  Sex: Female
  Weight: 74.83 kg

DRUGS (7)
  1. DROSPIRENONE AND ETHINYL ESTRADIOL [Suspect]
     Dosage: UNK
     Dates: start: 20090125, end: 20100123
  2. YASMIN [Suspect]
     Route: 048
  3. DROSPIRENONE AND ETHINYL ESTRADIOL [Suspect]
     Indication: CONTRACEPTION
     Dosage: 3.0/0.03 MG
     Route: 048
     Dates: start: 20080701, end: 20100301
  4. NEXIUM [Concomitant]
     Dosage: 40 MG, UNK
  5. DEMEROL [Concomitant]
     Indication: ABDOMINAL PAIN UPPER
     Dosage: UNK
     Dates: start: 20091127
  6. ZOFRAN [Concomitant]
     Indication: NAUSEA
     Dosage: UNK
     Dates: start: 20091127
  7. IBUPROFEN [Concomitant]

REACTIONS (2)
  - GALLBLADDER DISORDER [None]
  - CHOLECYSTITIS CHRONIC [None]
